FAERS Safety Report 8716259 (Version 3)
Quarter: 2013Q2

REPORT INFORMATION
  Report Type: Report from Study
  Country: JP (occurrence: JP)
  Receive Date: 20120810
  Receipt Date: 20130515
  Transmission Date: 20140414
  Serious: Yes (Other)
  Sender: FDA-Public Use
  Company Number: JP-009507513-1207JPN012858

PATIENT
  Age: 67 Year
  Sex: Female
  Weight: 45 kg

DRUGS (12)
  1. PEGINTRON [Suspect]
     Indication: CHRONIC HEPATITIS C
     Dosage: 1.5 MICROGRAM PER KILOGRAM, QW
     Route: 058
     Dates: start: 20120524, end: 20120621
  2. PEGINTRON [Suspect]
     Dosage: 0.725 MICROGRAM PER KILOGRAM, UNK
     Route: 058
     Dates: start: 20120628, end: 20120719
  3. PEGINTRON [Suspect]
     Dosage: 0.725 MICROGRAM PER KILOGRAM, UNK
     Route: 058
     Dates: start: 20120726
  4. REBETOL [Suspect]
     Indication: CHRONIC HEPATITIS C
     Dosage: 600 MG, QD
     Route: 048
     Dates: start: 20120524, end: 20120627
  5. REBETOL [Suspect]
     Dosage: 400 MG, QD
     Route: 048
     Dates: start: 20120628, end: 20120712
  6. REBETOL [Suspect]
     Dosage: 200 MG, QD
     Route: 048
     Dates: start: 20120713, end: 20120718
  7. REBETOL [Suspect]
     Dosage: 200 MG, QD
     Route: 048
     Dates: start: 20120726
  8. REBETOL [Suspect]
     Dosage: UNK
  9. TELAVIC [Suspect]
     Indication: CHRONIC HEPATITIS C
     Dosage: 2250 MG , QD
     Route: 048
     Dates: start: 20120524, end: 20120620
  10. TELAVIC [Suspect]
     Dosage: 1500 MG, QD
     Route: 048
     Dates: start: 20120621, end: 20120712
  11. AMOBAN [Concomitant]
     Indication: INSOMNIA
     Dosage: 5 MG, QD
     Route: 048
  12. [COMPOSITION UNSPECIFIED] [Concomitant]
     Indication: PROPHYLAXIS
     Dosage: Q.S/DAY, DAILY DOSE UNKNOWN
     Route: 051
     Dates: start: 20120719

REACTIONS (4)
  - Vomiting [Recovering/Resolving]
  - Nausea [Recovering/Resolving]
  - Decreased appetite [Recovering/Resolving]
  - Anaemia [Recovering/Resolving]
